FAERS Safety Report 12202213 (Version 1)
Quarter: 2016Q1

REPORT INFORMATION
  Report Type: Spontaneous
  Country: DE (occurrence: DE)
  Receive Date: 20160322
  Receipt Date: 20160322
  Transmission Date: 20160526
  Serious: Yes (Hospitalization)
  Sender: FDA-Public Use
  Company Number: DE-TEVA-643389GER

PATIENT
  Age: 47 Year
  Sex: Female
  Weight: 111 kg

DRUGS (3)
  1. CLOZAPIN [Suspect]
     Active Substance: CLOZAPINE
     Dosage: 200 MILLIGRAM DAILY;
     Route: 048
     Dates: start: 20160301
  2. LORAZEPAM. [Suspect]
     Active Substance: LORAZEPAM
     Dosage: 2 MILLIGRAM DAILY;
     Route: 048
     Dates: start: 20160301
  3. HALOPERIDOL. [Suspect]
     Active Substance: HALOPERIDOL
     Dosage: 4 MILLIGRAM DAILY;
     Route: 048
     Dates: start: 20160301

REACTIONS (4)
  - Somnolence [Recovered/Resolved]
  - Drug dispensed to wrong patient [Recovered/Resolved]
  - Sopor [Recovered/Resolved]
  - Salivary hypersecretion [Recovered/Resolved]

NARRATIVE: CASE EVENT DATE: 20160301
